FAERS Safety Report 14684335 (Version 2)
Quarter: 2018Q1

REPORT INFORMATION
  Report Type: Spontaneous
  Country: US (occurrence: US)
  Receive Date: 20180327
  Receipt Date: 20180330
  Transmission Date: 20180509
  Serious: Yes (Life-Threatening, Other)
  Sender: FDA-Public Use
  Company Number: US-PFIZER INC-2015438019

PATIENT
  Sex: Female

DRUGS (4)
  1. CISPLATIN. [Suspect]
     Active Substance: CISPLATIN
     Indication: MEDULLOBLASTOMA RECURRENT
     Dosage: 75 MG/M2, CYCLIC (FOR 1 DAY) - TOTAL OF 6 CYCLES
  2. TOPOTECAN HYDROCHLORIDE. [Suspect]
     Active Substance: TOPOTECAN HYDROCHLORIDE
     Indication: MEDULLOBLASTOMA RECURRENT
     Dosage: 2 MG/M2, CYCLIC ( FOR4 DAYS) -TOTAL OF 6 CYCLES
  3. CYCLOPHOSPHAMIDE. [Suspect]
     Active Substance: CYCLOPHOSPHAMIDE
     Indication: MEDULLOBLASTOMA RECURRENT
     Dosage: 2100 MG/M2, CYCLIC (FRO 2 DAYS) - TOTAL OF 6 CYCLES
  4. ETOPOSIDE. [Suspect]
     Active Substance: ETOPOSIDE
     Indication: MEDULLOBLASTOMA RECURRENT
     Dosage: 100 MG/M2, CYCLIC (FOR 2 DAYS) - TOTAL OF 6 CYCLES

REACTIONS (3)
  - Thrombocytopenia [Unknown]
  - Infection [Unknown]
  - Mucosal inflammation [Unknown]
